FAERS Safety Report 7376896-0 (Version None)
Quarter: 2011Q1

REPORT INFORMATION
  Report Type: 
  Country: None (occurrence: None)
  Receive Date: 20110327
  Receipt Date: 20110301
  Transmission Date: 20110831
  Serious: No
  Sender: FDA-Public Use
  Company Number: US-B.I. PHARMACEUTICALS,INC./RIDGEFIELD-2011-BP-06396BP

PATIENT
  Age: 81 Year
  Sex: Female

DRUGS (1)
  1. SPIRIVA [Suspect]
     Indication: CHRONIC OBSTRUCTIVE PULMONARY DISEASE
     Dosage: 18 MCG
     Route: 055
     Dates: start: 20110124

REACTIONS (10)
  - NAIL DISCOLOURATION [None]
  - DRY SKIN [None]
  - DYSGEUSIA [None]
  - SKIN DISORDER [None]
  - SKIN CHAPPED [None]
  - BLOOD CHOLESTEROL ABNORMAL [None]
  - DRY MOUTH [None]
  - CHILLS [None]
  - DIZZINESS [None]
  - HEADACHE [None]
